FAERS Safety Report 8118454-6 (Version None)
Quarter: 2012Q1

REPORT INFORMATION
  Report Type: 
  Country: None (occurrence: None)
  Receive Date: 20120201
  Receipt Date: 20111005
  Transmission Date: 20120608
  Serious: Yes (Death, Other)
  Sender: FDA-Public Use
  Company Number: 2011005042

PATIENT
  Age: 20 Year
  Sex: Male

DRUGS (6)
  1. ERYTHROMYCIN [Suspect]
  2. AMOXICILLIN [Suspect]
  3. FERROUS SULFATE TAB [Suspect]
  4. LOPERAMIDE HCL [Suspect]
  5. ACETAMINOPHEN [Suspect]
  6. ANTIDEPRESSANT NOS [Suspect]

REACTIONS (17)
  - LIVER INJURY [None]
  - BRAIN OEDEMA [None]
  - DRUG INTERACTION [None]
  - ACUTE HEPATIC FAILURE [None]
  - SEPSIS [None]
  - TOXICITY TO VARIOUS AGENTS [None]
  - HEPATIC NECROSIS [None]
  - PROTHROMBIN TIME PROLONGED [None]
  - AMMONIA INCREASED [None]
  - METABOLIC DISORDER [None]
  - COMPLETED SUICIDE [None]
  - INTRACRANIAL PRESSURE INCREASED [None]
  - BLOOD LACTIC ACID INCREASED [None]
  - NERVOUS SYSTEM DISORDER [None]
  - BRAIN HERNIATION [None]
  - MULTIPLE DRUG OVERDOSE INTENTIONAL [None]
  - CHOLESTASIS [None]
